FAERS Safety Report 20674850 (Version 1)
Quarter: 2022Q2

REPORT INFORMATION
  Report Type: Spontaneous
  Country: US (occurrence: US)
  Receive Date: 20220405
  Receipt Date: 20220405
  Transmission Date: 20220721
  Serious: Yes (Other)
  Sender: FDA-Public Use
  Company Number: US-PFIZER INC-202200473741

PATIENT
  Age: 92 Year
  Sex: Female
  Weight: 47.619 kg

DRUGS (1)
  1. IBRANCE [Suspect]
     Active Substance: PALBOCICLIB
     Indication: Breast cancer metastatic
     Dosage: 125 MG

REACTIONS (4)
  - Choking [Unknown]
  - Vomiting [Unknown]
  - Dysphagia [Unknown]
  - Product dose omission issue [Unknown]
